FAERS Safety Report 7258032-4 (Version None)
Quarter: 2011Q1

REPORT INFORMATION
  Report Type: 
  Country: None (occurrence: None)
  Receive Date: 20110129
  Receipt Date: 20100616
  Transmission Date: 20110831
  Serious: No
  Sender: FDA-Public Use
  Company Number: US-ABBOTT-10P-163-0651655-00

PATIENT
  Age: 51 Year
  Sex: Female

DRUGS (11)
  1. SYNTHROID [Concomitant]
     Indication: HYPOTHYROIDISM
  2. HUMIRA [Suspect]
     Indication: RHEUMATOID ARTHRITIS
     Dates: start: 20100301
  3. LORTAB [Concomitant]
     Indication: BREAKTHROUGH PAIN
  4. PLAQUENIL [Concomitant]
     Indication: RHEUMATOID ARTHRITIS
  5. ZOLAR [Concomitant]
     Indication: ASTHMA
     Dosage: 2 VIALS EVERY OTHER WEEK
  6. SPIRIVA [Concomitant]
     Indication: ASTHMA
  7. ADVAIR [Concomitant]
     Indication: ASTHMA
     Dosage: 500/50 TWICE DAILY
  8. PREMARIN [Concomitant]
     Indication: HORMONE REPLACEMENT THERAPY
  9. ZYRTEC [Concomitant]
     Indication: HYPERSENSITIVITY
  10. SINGULAIR [Concomitant]
     Indication: HYPERSENSITIVITY
  11. FLONASE [Concomitant]
     Indication: HYPERSENSITIVITY

REACTIONS (1)
  - FATIGUE [None]
